FAERS Safety Report 5168809-7 (Version None)
Quarter: 2006Q4

REPORT INFORMATION
  Report Type: 
  Country: None (occurrence: None)
  Receive Date: 20061211
  Receipt Date: 20061206
  Transmission Date: 20070319
  Serious: Yes (Life-Threatening)
  Sender: FDA-Public Use
  Company Number: PHRM2006FR03241

PATIENT
  Age: 73 Year
  Sex: Female
  Weight: 80 kg

DRUGS (15)
  1. TETRACAINE 1% FAURE (NVO) [Suspect]
     Indication: LOCAL ANAESTHESIA
     Dosage: 3 DF, ONCE/SINGLE
     Route: 047
     Dates: start: 20061010, end: 20061010
  2. DIPRIVAN [Suspect]
     Indication: GENERAL ANAESTHESIA
     Dosage: 100 MG, ONCE/SINGLE
     Route: 048
     Dates: start: 20061010, end: 20061010
  3. DIAMOX FOR INJECTION [Suspect]
     Indication: BORDERLINE GLAUCOMA
     Dosage: 500 MG, ONCE/SINGLE
     Route: 042
     Dates: start: 20061010, end: 20061010
  4. BETADINE [Concomitant]
     Dates: start: 20061010, end: 20061010
  5. HYZAAR [Concomitant]
     Indication: ESSENTIAL HYPERTENSION
     Route: 048
  6. PERFALGAN [Concomitant]
     Dosage: 1 G, UNK
     Route: 042
     Dates: start: 20061010, end: 20061010
  7. LEVOTHYROXINE SODIUM [Concomitant]
     Indication: HYPOTHYROIDISM
     Route: 048
  8. LEVEMIR [Concomitant]
     Indication: DIABETES MELLITUS
  9. NOVORAPID [Concomitant]
     Indication: DIABETES MELLITUS
  10. LEXOMIL [Concomitant]
     Route: 048
  11. XALATAN [Concomitant]
     Route: 047
  12. INDOCOLLYRE [Concomitant]
     Route: 047
  13. TOBRADEX [Concomitant]
     Route: 047
  14. PANTOPRAZOLE SODIUM [Concomitant]
     Route: 048
  15. PANTOPRAZOLE SODIUM [Concomitant]
     Route: 048

REACTIONS (8)
  - ACUTE PULMONARY OEDEMA [None]
  - BRADYCARDIA [None]
  - HYPERSENSITIVITY [None]
  - HYPOTENSION [None]
  - HYPOXIA [None]
  - RALES [None]
  - SHOCK [None]
  - TRYPTASE INCREASED [None]
